FAERS Safety Report 15604771 (Version 1)
Quarter: 2018Q4

REPORT INFORMATION
  Report Type: Spontaneous
  Country: US (occurrence: US)
  Receive Date: 20181109
  Receipt Date: 20181109
  Transmission Date: 20190205
  Serious: No
  Sender: FDA-Public Use
  Company Number: None

PATIENT
  Age: 62 Year
  Sex: Female
  Weight: 78.75 kg

DRUGS (10)
  1. ZILRETTA [Suspect]
     Active Substance: TRIAMCINOLONE ACETONIDE
     Indication: PATELLOFEMORAL PAIN SYNDROME
     Dosage: ?          OTHER FREQUENCY:ONE TIME;?
     Dates: start: 20181019, end: 20181019
  2. IBUPROFEN. [Concomitant]
     Active Substance: IBUPROFEN
  3. LOSARTAN. [Concomitant]
     Active Substance: LOSARTAN
  4. HCTZ [Concomitant]
     Active Substance: HYDROCHLOROTHIAZIDE
  5. ZILRETTA [Suspect]
     Active Substance: TRIAMCINOLONE ACETONIDE
     Indication: OSTEOARTHRITIS
     Dosage: ?          OTHER FREQUENCY:ONE TIME;?
     Dates: start: 20181019, end: 20181019
  6. LOW DOSE ASA [Concomitant]
  7. DOXYCYCLINE. [Concomitant]
     Active Substance: DOXYCYCLINE
  8. PROBIOTICS [Concomitant]
     Active Substance: PROBIOTICS NOS
  9. CLARITIN [Concomitant]
     Active Substance: LORATADINE
  10. SYNTHROID [Concomitant]
     Active Substance: LEVOTHYROXINE SODIUM

REACTIONS (4)
  - Swelling [None]
  - Pain [None]
  - Urticaria [None]
  - Arthralgia [None]

NARRATIVE: CASE EVENT DATE: 20181019
